FAERS Safety Report 22541677 (Version 2)
Quarter: 2023Q2

REPORT INFORMATION
  Report Type: Spontaneous
  Country: CN (occurrence: None)
  Receive Date: 20230609
  Receipt Date: 20230614
  Transmission Date: 20230722
  Serious: Yes (Hospitalization)
  Sender: FDA-Public Use
  Company Number: 2023A126198

PATIENT
  Age: 61 Year
  Sex: Male
  Weight: 60 kg

DRUGS (1)
  1. TAGRISSO [Suspect]
     Active Substance: OSIMERTINIB
     Indication: Pulmonary mass
     Dosage: ONE TABLET AT A TIME
     Route: 048
     Dates: start: 201907

REACTIONS (4)
  - Oral blood blister [Recovering/Resolving]
  - Blood glucose increased [Recovering/Resolving]
  - Dry mouth [Not Recovered/Not Resolved]
  - Cough [Recovering/Resolving]
